FAERS Safety Report 9278257 (Version 2)
Quarter: 2013Q2

REPORT INFORMATION
  Report Type: Spontaneous
  Country: US (occurrence: US)
  Receive Date: 20130508
  Receipt Date: 20130530
  Transmission Date: 20140414
  Serious: Yes (Other)
  Sender: FDA-Public Use
  Company Number: US-PFIZER INC-2013137509

PATIENT
  Age: 87 Year
  Sex: Male

DRUGS (5)
  1. TOVIAZ [Suspect]
     Dosage: 4 MG, 1X/DAY
  2. ASA [Concomitant]
     Dosage: UNK
  3. SENNA [Concomitant]
     Dosage: UNK
  4. CALCIUM WITH VITAMIN D [Concomitant]
     Dosage: UNK
  5. FISH OIL [Concomitant]
     Dosage: UNK

REACTIONS (1)
  - Cerebrovascular accident [Unknown]
